FAERS Safety Report 9143532 (Version 1)
Quarter: 2013Q1

REPORT INFORMATION
  Report Type: Spontaneous
  Country: US (occurrence: US)
  Receive Date: 20130306
  Receipt Date: 20130306
  Transmission Date: 20140127
  Serious: No
  Sender: FDA-Public Use
  Company Number: US-ENDO PHARMACEUTICALS INC.-OPER20120270

PATIENT
  Sex: Male

DRUGS (2)
  1. OPANA ER [Suspect]
     Indication: NECK PAIN
     Route: 048
  2. OPANA ER [Suspect]
     Indication: MUSCULOSKELETAL PAIN

REACTIONS (3)
  - Restless legs syndrome [Unknown]
  - Diarrhoea [Unknown]
  - Hyperhidrosis [Unknown]
